FAERS Safety Report 6162852-7 (Version None)
Quarter: 2009Q2

REPORT INFORMATION
  Report Type: 
  Country: None (occurrence: None)
  Receive Date: 20090421
  Receipt Date: 20081103
  Transmission Date: 20091009
  Serious: No
  Sender: FDA-Public Use
  Company Number: US-ASTRAZENECA-2008UW24598

PATIENT
  Age: 88 Year
  Sex: Female
  Weight: 62.1 kg

DRUGS (9)
  1. TOPROL-XL [Suspect]
     Indication: HYPERTENSION
     Route: 048
     Dates: start: 20080601
  2. TOPROL-XL [Suspect]
     Route: 048
  3. TOPROL-XL [Suspect]
     Route: 048
     Dates: end: 20081001
  4. TOPROL-XL [Suspect]
     Route: 048
     Dates: start: 20081001
  5. COUMADIN [Concomitant]
  6. KEPPRA [Concomitant]
  7. ASPIRIN [Concomitant]
  8. COQ10 [Concomitant]
  9. BUDESONIDE [Concomitant]

REACTIONS (4)
  - BLOOD PRESSURE DECREASED [None]
  - OEDEMA PERIPHERAL [None]
  - RASH [None]
  - URTICARIA [None]
